FAERS Safety Report 5189699-2 (Version None)
Quarter: 2006Q4

REPORT INFORMATION
  Report Type: 
  Country: None (occurrence: None)
  Receive Date: 20061218
  Receipt Date: 20061207
  Transmission Date: 20070319
  Serious: Yes (Other)
  Sender: FDA-Public Use
  Company Number: 2006133871

PATIENT
  Sex: Female

DRUGS (5)
  1. DILANTIN [Suspect]
     Indication: CONVULSION
     Dosage: 300 MG (100MG, 3 IN 1 D)
     Dates: start: 20010101
  2. ZYRTEC [Concomitant]
  3. METOPROLOL TARTRATE [Concomitant]
  4. NORVASC [Concomitant]
  5. EFFEXOR [Concomitant]

REACTIONS (4)
  - DIET REFUSAL [None]
  - DRUG LEVEL FLUCTUATING [None]
  - LETHARGY [None]
  - STARING [None]
